FAERS Safety Report 12465196 (Version 1)
Quarter: 2016Q2

REPORT INFORMATION
  Report Type: Spontaneous
  Country: US (occurrence: US)
  Receive Date: 20160614
  Receipt Date: 20160614
  Transmission Date: 20160815
  Serious: No
  Sender: FDA-Public Use
  Company Number: US-G+W LABS-GW2016US000042

PATIENT

DRUGS (2)
  1. NORVASC [Concomitant]
     Active Substance: AMLODIPINE BESYLATE
     Indication: HYPERTENSION
     Dosage: 10 MG, QD
     Route: 048
  2. METRONIDAZOLE. [Suspect]
     Active Substance: METRONIDAZOLE
     Indication: ROSACEA
     Dosage: 0.75 %, SINGLE
     Route: 048
     Dates: start: 201602

REACTIONS (3)
  - Incorrect route of drug administration [Recovered/Resolved]
  - No adverse event [Recovered/Resolved]
  - Accidental exposure to product [None]

NARRATIVE: CASE EVENT DATE: 20160608
